FAERS Safety Report 7144904-8 (Version None)
Quarter: 2010Q4

REPORT INFORMATION
  Report Type: 
  Country: None (occurrence: None)
  Receive Date: 20101208
  Receipt Date: 20101126
  Transmission Date: 20110411
  Serious: Yes (Other)
  Sender: FDA-Public Use
  Company Number: AU-JNJFOC-20101200395

PATIENT
  Sex: Female

DRUGS (1)
  1. SIMPONI [Suspect]
     Indication: RHEUMATOID ARTHRITIS
     Route: 058

REACTIONS (5)
  - COUGH [None]
  - HYPERTHYROIDISM [None]
  - LARYNGITIS [None]
  - POROKERATOSIS [None]
  - THYROID NEOPLASM [None]
